FAERS Safety Report 10270142 (Version 1)
Quarter: 2014Q2

REPORT INFORMATION
  Report Type: Spontaneous
  Country: US (occurrence: None)
  Receive Date: 20140626
  Receipt Date: 20140626
  Transmission Date: 20141212
  Serious: Yes (Hospitalization)
  Sender: FDA-Public Use
  Company Number: UNT-2014-002572

PATIENT
  Age: 34 Year
  Sex: Female
  Weight: 99.8 kg

DRUGS (2)
  1. REMODULIN (TREPROSTINIL SODIUM) INJECTION, 5MG/ML [Suspect]
     Indication: PULMONARY ARTERIAL HYPERTENSION
     Dosage: 0.092 UG/KG, CONTINUING, INTRAVENOUS
     Route: 042
     Dates: start: 20091106
  2. SILDENAFIL (SILDENAFIL) [Concomitant]

REACTIONS (2)
  - Device breakage [None]
  - Drug dose omission [None]
